FAERS Safety Report 11510645 (Version 1)
Quarter: 2015Q3

REPORT INFORMATION
  Report Type: Spontaneous
  Country: US (occurrence: US)
  Receive Date: 20150915
  Receipt Date: 20150915
  Transmission Date: 20151125
  Serious: No
  Sender: FDA-Public Use
  Company Number: US-JNJFOC-20150813067

PATIENT
  Age: 75 Year
  Sex: Female
  Weight: 86.18 kg

DRUGS (4)
  1. DICLOFENAC [Concomitant]
     Active Substance: DICLOFENAC
     Indication: PAIN
     Dosage: COUPLE OF MONTHS
     Route: 065
  2. TYLENOL EXTRA STRENGTH [Suspect]
     Active Substance: ACETAMINOPHEN
     Indication: PAIN
     Dosage: ONCE
     Route: 048
     Dates: start: 20150816, end: 20150816
  3. THYROZOL [Concomitant]
     Active Substance: METHIMAZOLE
     Indication: THYROIDECTOMY
     Dosage: FOR A LONG TIME
     Route: 065
  4. LISINOPRIL HCTZ [Concomitant]
     Active Substance: HYDROCHLOROTHIAZIDE\LISINOPRIL
     Indication: DIURETIC THERAPY
     Dosage: 10MG/12.5MG FOR LONG TIME
     Route: 065

REACTIONS (1)
  - Abdominal pain upper [Recovered/Resolved]

NARRATIVE: CASE EVENT DATE: 20150816
